FAERS Safety Report 15434007 (Version 2)
Quarter: 2020Q1

REPORT INFORMATION
  Report Type: Spontaneous
  Country: US (occurrence: US)
  Receive Date: 20180927
  Receipt Date: 20200107
  Transmission Date: 20200409
  Serious: Yes (Other)
  Sender: FDA-Public Use
  Company Number: US-SA-2018SA177414

PATIENT
  Age: 41 Year
  Sex: Female
  Weight: 104.32 kg

DRUGS (7)
  1. TAXOTERE [Suspect]
     Active Substance: DOCETAXEL
     Dosage: 65 MG, Q3W
     Route: 042
     Dates: start: 20110719, end: 20110719
  2. TAXOTERE [Suspect]
     Active Substance: DOCETAXEL
     Indication: BREAST CANCER FEMALE
     Dosage: 65 MG, Q3W
     Route: 042
     Dates: start: 20110120, end: 20110120
  3. TAXOTERE [Suspect]
     Active Substance: DOCETAXEL
     Dosage: 65 MG, Q3W
     Route: 042
     Dates: start: 20110518, end: 20110518
  4. HERCEPTIN [Concomitant]
     Active Substance: TRASTUZUMAB
     Indication: BREAST CANCER FEMALE
     Dosage: UNK, UNK
     Route: 065
     Dates: start: 20110120, end: 20110120
  5. PARAPLATIN [Concomitant]
     Active Substance: CARBOPLATIN
     Dosage: UNK, UNK
     Route: 065
     Dates: start: 20110719, end: 20110719
  6. HERCEPTIN [Concomitant]
     Active Substance: TRASTUZUMAB
     Dosage: UNK UNK, UNK
     Route: 065
     Dates: start: 20110719, end: 20110719
  7. PARAPLATIN [Concomitant]
     Active Substance: CARBOPLATIN
     Indication: BREAST CANCER FEMALE
     Dosage: UNK, UNK
     Route: 065
     Dates: start: 20110120, end: 20110120

REACTIONS (2)
  - Alopecia [Not Recovered/Not Resolved]
  - Psychological trauma [Unknown]
